FAERS Safety Report 4875622-4 (Version None)
Quarter: 2006Q1

REPORT INFORMATION
  Report Type: 
  Country: None (occurrence: None)
  Receive Date: 20060109
  Receipt Date: 20051228
  Transmission Date: 20060701
  Serious: Yes (Hospitalization)
  Sender: FDA-Public Use
  Company Number: US-KINGPHARMUSA00001-K200501653

PATIENT
  Age: 12 Year
  Sex: Female
  Weight: 50 kg

DRUGS (2)
  1. METHIMAZOLE TABLETS, USP [Suspect]
     Indication: HYPERTHYROIDISM
     Dosage: 10 MG, QD
     Route: 048
     Dates: start: 20051101, end: 20051227
  2. ATENOLOL [Concomitant]
     Indication: HEART RATE
     Dosage: 25 MG, BID
     Route: 048
     Dates: start: 20051101

REACTIONS (5)
  - BACK PAIN [None]
  - HEADACHE [None]
  - MYALGIA [None]
  - MYOCLONUS [None]
  - VOMITING [None]
